FAERS Safety Report 7134770-9 (Version None)
Quarter: 2010Q4

REPORT INFORMATION
  Report Type: 
  Country: None (occurrence: None)
  Receive Date: 20101203
  Receipt Date: 20101122
  Transmission Date: 20110411
  Serious: Yes (Hospitalization)
  Sender: FDA-Public Use
  Company Number: ES-ROCHE-744075

PATIENT
  Age: 51 Year
  Sex: Male

DRUGS (13)
  1. PEGASYS [Suspect]
     Indication: HEPATITIS C
     Route: 058
     Dates: start: 20090501, end: 20091121
  2. MIRTAZAPINE [Concomitant]
     Route: 048
  3. DIAZEPAM [Concomitant]
     Route: 048
  4. RIBAVIRIN [Concomitant]
     Indication: HEPATITIS C
     Route: 048
     Dates: start: 20090501, end: 20091121
  5. AKINETON [Concomitant]
     Route: 048
  6. CIPRALEX [Concomitant]
     Route: 048
  7. EPREX [Concomitant]
     Route: 058
  8. ETUMINA [Concomitant]
     Route: 048
  9. IDALPREM [Concomitant]
     Route: 048
  10. SEROQUEL [Concomitant]
     Dosage: DRUG NAME: SEROQUEL PROLONG
  11. INVEGA [Concomitant]
  12. OMEPRAZOLE [Concomitant]
  13. FLURAZEPAM [Concomitant]

REACTIONS (1)
  - PERICARDIAL EFFUSION [None]
